FAERS Safety Report 17039446 (Version 1)
Quarter: 2019Q4

REPORT INFORMATION
  Report Type: Spontaneous
  Country: JP (occurrence: JP)
  Receive Date: 20191115
  Receipt Date: 20191115
  Transmission Date: 20200122
  Serious: Yes (Other)
  Sender: FDA-Public Use
  Company Number: JP-009507513-1911JPN005474

PATIENT
  Age: 69 Year
  Sex: Female

DRUGS (1)
  1. PEMBROLIZUMAB. [Suspect]
     Active Substance: PEMBROLIZUMAB
     Indication: LARGE CELL LUNG CANCER METASTATIC
     Dosage: 200 MG/BODY, EVERY THREE WEEKS

REACTIONS (3)
  - Product use in unapproved indication [Unknown]
  - Renal impairment [Recovered/Resolved]
  - Adrenocorticotropic hormone deficiency [Recovered/Resolved]
